FAERS Safety Report 14051655 (Version 1)
Quarter: 2017Q4

REPORT INFORMATION
  Report Type: Report from Study
  Country: US (occurrence: US)
  Receive Date: 20171006
  Receipt Date: 20171006
  Transmission Date: 20180321
  Serious: Yes (Other)
  Sender: FDA-Public Use
  Company Number: US-SUN PHARMACEUTICAL INDUSTRIES LTD-2017US-150963

PATIENT
  Age: 45 Year
  Sex: Male

DRUGS (1)
  1. QUININE [Suspect]
     Active Substance: QUININE
     Indication: MALARIA
     Dosage: UNK
     Route: 065

REACTIONS (5)
  - Retinal vascular disorder [Unknown]
  - Optic atrophy [Unknown]
  - Retinal degeneration [Unknown]
  - Retinal toxicity [Unknown]
  - Blindness [Unknown]
